FAERS Safety Report 6005561-7 (Version None)
Quarter: 2008Q4

REPORT INFORMATION
  Report Type: 
  Country: None (occurrence: None)
  Receive Date: 20081216
  Receipt Date: 20081216
  Transmission Date: 20090506
  Serious: Yes (Other)
  Sender: FDA-Public Use
  Company Number: None

PATIENT
  Sex: Female

DRUGS (1)
  1. FOSPHENYTOIN [Suspect]
     Dosage: 1GM IV DRIP
     Route: 041

REACTIONS (3)
  - PRURITUS [None]
  - RESTLESSNESS [None]
  - URTICARIA [None]
